FAERS Safety Report 23213508 (Version 2)
Quarter: 2023Q4

REPORT INFORMATION
  Report Type: Report from Study
  Country: US (occurrence: US)
  Receive Date: 20231121
  Receipt Date: 20231206
  Transmission Date: 20240109
  Serious: Yes (Hospitalization)
  Sender: FDA-Public Use
  Company Number: US-PARATEK PHARMACEUTICALS, INC.-2023PTK00622

PATIENT
  Age: 90 Year
  Sex: Male

DRUGS (2)
  1. NUZYRA [Suspect]
     Active Substance: OMADACYCLINE
     Indication: Bronchiectasis
     Dosage: 300 MG, 1X/DAY BEFORE BREAKFAST
     Route: 048
  2. NUZYRA [Suspect]
     Active Substance: OMADACYCLINE
     Indication: Lower respiratory tract infection

REACTIONS (3)
  - Pulmonary haemorrhage [Not Recovered/Not Resolved]
  - Hypoacusis [Unknown]
  - Incorrect product administration duration [Not Recovered/Not Resolved]

NARRATIVE: CASE EVENT DATE: 20231101
